FAERS Safety Report 6743752-8 (Version None)
Quarter: 2010Q2

REPORT INFORMATION
  Report Type: 
  Country: None (occurrence: None)
  Receive Date: 20100526
  Receipt Date: 20100526
  Transmission Date: 20101027
  Serious: Yes (Other)
  Sender: FDA-Public Use
  Company Number: None

PATIENT
  Age: 79 Year
  Sex: Female
  Weight: 58.0604 kg

DRUGS (3)
  1. ENTOCORT EC [Suspect]
     Indication: CROHN'S DISEASE
     Dosage: 3 MG 3 X DAILY PO
     Route: 048
     Dates: start: 20100519, end: 20100524
  2. QUESTRAN [Concomitant]
  3. ASACOL [Concomitant]

REACTIONS (1)
  - MUSCLE SPASMS [None]
